FAERS Safety Report 18179074 (Version 1)
Quarter: 2020Q3

REPORT INFORMATION
  Report Type: Spontaneous
  Country: DE (occurrence: DE)
  Receive Date: 20200821
  Receipt Date: 20200821
  Transmission Date: 20201103
  Serious: Yes (Hospitalization)
  Sender: FDA-Public Use
  Company Number: DE-TEVA-2020-DE-1815996

PATIENT
  Age: 66 Year
  Sex: Male
  Weight: 82 kg

DRUGS (16)
  1. PHENPROCOUMON [Suspect]
     Active Substance: PHENPROCOUMON
     Dosage: 3 MG
     Route: 048
     Dates: end: 20200110
  2. ACETYLSALICYLSAURE [Suspect]
     Active Substance: ASPIRIN
     Dosage: 100 MILLIGRAM DAILY;  1?0?0?0
     Route: 048
  3. NEBIVOLOL. [Concomitant]
     Active Substance: NEBIVOLOL
     Dosage: 5 MILLIGRAM DAILY;  1?0?0?0
     Route: 048
  4. TORASEMID [Concomitant]
     Active Substance: TORSEMIDE
     Dosage: .5 DOSAGE FORMS DAILY; 10 MG, 0.5?0?0?0
     Route: 048
  5. EZETIMIB [Concomitant]
     Active Substance: EZETIMIBE
     Dosage: 10 MILLIGRAM DAILY;  0?0?1?0
     Route: 048
  6. VALSARTAN. [Concomitant]
     Active Substance: VALSARTAN
     Dosage: 80 MILLIGRAM DAILY; 1?0?0?0,
     Route: 048
  7. EDOXABAN [Suspect]
     Active Substance: EDOXABAN TOSYLATE
     Dosage: 30 MILLIGRAM DAILY;
     Route: 048
     Dates: start: 20200110
  8. URAPIDIL [Concomitant]
     Active Substance: URAPIDIL
     Dosage: 180 MILLIGRAM DAILY; 90 MG, 1?0?1?0
     Route: 048
  9. LERCANIDIPINE [Concomitant]
     Active Substance: LERCANIDIPINE
     Dosage: 20 MILLIGRAM DAILY;  1?0?0?0
     Route: 048
  10. FEBUXOSTAT. [Concomitant]
     Active Substance: FEBUXOSTAT
     Dosage: 80 MILLIGRAM DAILY;  1?0?0?0
     Route: 048
  11. MOXONIDIN [Concomitant]
     Active Substance: MOXONIDINE
     Dosage: .3 MILLIGRAM DAILY;  0?1?0?0
     Route: 048
  12. CLOPIDOGREL [Suspect]
     Active Substance: CLOPIDOGREL BISULFATE
     Dosage: 75 MILLIGRAM DAILY;  1?0?0?0,
     Route: 048
  13. COLECALCIFEROL (VITAMIN D) [Concomitant]
     Dosage: 20,000 IU / WEEK, 1X
     Route: 048
  14. PANTOPRAZOL [Concomitant]
     Active Substance: PANTOPRAZOLE SODIUM
     Dosage: 40 MILLIGRAM DAILY;  1?0?0?0
     Route: 048
  15. ROSUVASTATIN. [Concomitant]
     Active Substance: ROSUVASTATIN
     Dosage: 10 MILLIGRAM DAILY;  0?0?1?0,
     Route: 048
  16. BICANORM [Concomitant]
     Active Substance: SODIUM BICARBONATE
     Dosage: 3 DOSAGE FORMS DAILY; 1?1?1?0, 1 DF
     Route: 048

REACTIONS (4)
  - Haematochezia [Recovering/Resolving]
  - Palpitations [Recovering/Resolving]
  - Chest discomfort [Recovering/Resolving]
  - Angina pectoris [Recovering/Resolving]
